FAERS Safety Report 24617795 (Version 1)
Quarter: 2024Q4

REPORT INFORMATION
  Report Type: Spontaneous
  Country: US (occurrence: US)
  Receive Date: 20241114
  Receipt Date: 20241114
  Transmission Date: 20250114
  Serious: Yes (Other)
  Sender: ACCORD
  Company Number: US-MLMSERVICE-20241030-PI243917-00272-1

PATIENT
  Age: 35 Year
  Sex: Female

DRUGS (1)
  1. PROGESTERONE [Suspect]
     Active Substance: PROGESTERONE
     Indication: Infertility
     Dosage: INTRAMUSCULAR PROGESTERONE IN SESAME OIL
     Route: 030

REACTIONS (2)
  - Autoimmune dermatitis [Recovered/Resolved]
  - Off label use [Unknown]
